FAERS Safety Report 20932870 (Version 1)
Quarter: 2022Q2

REPORT INFORMATION
  Report Type: Spontaneous
  Country: US (occurrence: US)
  Receive Date: 20220608
  Receipt Date: 20220608
  Transmission Date: 20220720
  Serious: Yes (Other)
  Sender: FDA-Public Use
  Company Number: US-REGENERON PHARMACEUTICALS, INC.-2021-111516

PATIENT
  Sex: Male

DRUGS (4)
  1. EYLEA [Suspect]
     Active Substance: AFLIBERCEPT
     Indication: Neovascular age-related macular degeneration
     Dosage: UNK, BOTH EYES
     Route: 031
     Dates: start: 201806, end: 201806
  2. EYLEA [Suspect]
     Active Substance: AFLIBERCEPT
     Dosage: UNK, BOTH EYES
     Route: 031
     Dates: start: 20210922, end: 20210922
  3. EYLEA [Suspect]
     Active Substance: AFLIBERCEPT
     Dosage: UNK, BOTH EYES
     Route: 031
     Dates: start: 20211020, end: 20211020
  4. EYLEA [Suspect]
     Active Substance: AFLIBERCEPT
     Dosage: UNK, BOTH EYES
     Route: 031
     Dates: start: 20211117, end: 20211117

REACTIONS (1)
  - Uveitis [Recovering/Resolving]

NARRATIVE: CASE EVENT DATE: 20211004
